FAERS Safety Report 7088324-3 (Version None)
Quarter: 2010Q4

REPORT INFORMATION
  Report Type: 
  Country: None (occurrence: None)
  Receive Date: 20101108
  Receipt Date: 20101101
  Transmission Date: 20110411
  Serious: Yes (Death, Other)
  Sender: FDA-Public Use
  Company Number: US-BAYER-201039648NA

PATIENT
  Age: 28 Year
  Sex: Female

DRUGS (1)
  1. YAZ [Suspect]
     Indication: PRODUCT USED FOR UNKNOWN INDICATION
     Route: 048
     Dates: start: 20070901, end: 20090801

REACTIONS (11)
  - ANXIETY [None]
  - BLOOD PRESSURE FLUCTUATION [None]
  - COMPLETED SUICIDE [None]
  - DEPRESSION [None]
  - FEELING GUILTY [None]
  - GASTROINTESTINAL PAIN [None]
  - MIGRAINE [None]
  - NAUSEA [None]
  - PANIC ATTACK [None]
  - RENAL FAILURE [None]
  - TUBULOINTERSTITIAL NEPHRITIS [None]
